FAERS Safety Report 20876588 (Version 1)
Quarter: 2022Q2

REPORT INFORMATION
  Report Type: Spontaneous
  Country: US (occurrence: US)
  Receive Date: 20220526
  Receipt Date: 20220526
  Transmission Date: 20220721
  Serious: No
  Sender: FDA-Public Use
  Company Number: US-STRIDES ARCOLAB LIMITED-2021SP025099

PATIENT
  Age: 77 Year
  Sex: Male

DRUGS (11)
  1. VANCOMYCIN [Suspect]
     Active Substance: VANCOMYCIN
     Indication: COVID-19 pneumonia
     Dosage: UNK
     Route: 065
     Dates: start: 2020
  2. PIPERACILLIN AND TAZOBACTAM [Concomitant]
     Active Substance: PIPERACILLIN SODIUM\TAZOBACTAM SODIUM
     Indication: COVID-19 pneumonia
     Dosage: UNK
     Route: 065
  3. PREDNISONE [Concomitant]
     Active Substance: PREDNISONE
     Indication: Granulomatosis with polyangiitis
     Dosage: UNK, (ALONG WITH METHOTREXATE)
     Route: 065
  4. PREDNISONE [Concomitant]
     Active Substance: PREDNISONE
     Indication: Pachymeningitis
     Dosage: 40 MILLIGRAM PER DAY (STARTED IN THE SPRING OF 2020 ALONG WITH LEVETIRACETAM)
     Route: 048
     Dates: start: 2020, end: 2020
  5. PREDNISONE [Concomitant]
     Active Substance: PREDNISONE
     Dosage: UNK, (TAPERING STARTED AFTER RECEIVING TWO DOSES OF IV RITUXIMAB)
     Route: 048
     Dates: start: 202009
  6. PREDNISONE [Concomitant]
     Active Substance: PREDNISONE
     Dosage: 15 MILLIGRAM PER DAY
     Route: 048
  7. RITUXIMAB [Concomitant]
     Active Substance: RITUXIMAB
     Indication: Granulomatosis with polyangiitis
     Dosage: UNK, (BETWEEN 2006 AND 2015, THE PATIENT RECEIVED TOTAL 6 TREATMENTS WITH RITUXIMAB)
     Route: 042
  8. RITUXIMAB [Concomitant]
     Active Substance: RITUXIMAB
     Dosage: 1000 MILLIGRAM PER 2 WEEK (RECEIVED TWO DOSES, ONE AT THE END OF AUGUST AND ANOTHER IN EARLY SEPTEMB
     Route: 042
     Dates: start: 202008, end: 202009
  9. COVID-19 CONVALESCENT PLASMA [Concomitant]
     Active Substance: COVID-19 CONVALESCENT PLASMA
     Indication: COVID-19 pneumonia
     Dosage: UNK, (RECEIVED TWO UNITS)
     Route: 065
     Dates: start: 202011
  10. LEVETIRACETAM [Concomitant]
     Active Substance: LEVETIRACETAM
     Indication: Pachymeningitis
     Dosage: UNK, (STARTED IN THE SPRING OF 2020 ALONG WITH PREDNISONE)
     Route: 065
     Dates: start: 2020
  11. ATOVAQUONE [Concomitant]
     Active Substance: ATOVAQUONE
     Indication: Product used for unknown indication
     Dosage: UNK
     Route: 065

REACTIONS (1)
  - Off label use [Unknown]
